FAERS Safety Report 14882654 (Version 2)
Quarter: 2018Q2

REPORT INFORMATION
  Report Type: Spontaneous
  Country: LT (occurrence: LT)
  Receive Date: 20180511
  Receipt Date: 20180618
  Transmission Date: 20180711
  Serious: No
  Sender: FDA-Public Use
  Company Number: LT-ASTRAZENECA-2018SE60538

PATIENT
  Age: 819 Month
  Sex: Female

DRUGS (4)
  1. FORXIGA [Suspect]
     Active Substance: DAPAGLIFLOZIN
     Indication: TYPE 2 DIABETES MELLITUS
     Route: 048
     Dates: start: 201803, end: 201804
  2. VICTOZA [Concomitant]
     Active Substance: LIRAGLUTIDE
     Indication: TYPE 2 DIABETES MELLITUS
     Dosage: 1.2 MG, 1 DAILY
     Dates: start: 201710, end: 201803
  3. INSULIN [Concomitant]
     Active Substance: INSULIN NOS
     Dates: start: 201804
  4. METFORMIN [Concomitant]
     Active Substance: METFORMIN HYDROCHLORIDE
     Indication: TYPE 2 DIABETES MELLITUS
     Dosage: 2 G, 2 DAILY

REACTIONS (2)
  - Genital burning sensation [Recovering/Resolving]
  - Pruritus genital [Recovering/Resolving]

NARRATIVE: CASE EVENT DATE: 201803
